FAERS Safety Report 5623448-6 (Version None)
Quarter: 2008Q1

REPORT INFORMATION
  Report Type: 
  Country: None (occurrence: None)
  Receive Date: 20080207
  Receipt Date: 20080125
  Transmission Date: 20080703
  Serious: Yes (Hospitalization, Other)
  Sender: FDA-Public Use
  Company Number: RENA-1000029

PATIENT
  Age: 34 Year
  Sex: Male

DRUGS (1)
  1. RENAGEL [Suspect]
     Indication: HYPERPHOSPHATAEMIA
     Dosage: 4 G, TID, ORAL
     Route: 048
     Dates: start: 20050301

REACTIONS (3)
  - FLUID OVERLOAD [None]
  - KIDNEY TRANSPLANT REJECTION [None]
  - NASOPHARYNGITIS [None]
